FAERS Safety Report 8510795-3 (Version None)
Quarter: 2012Q3

REPORT INFORMATION
  Report Type: 
  Country: None (occurrence: None)
  Receive Date: 20120716
  Receipt Date: 20120710
  Transmission Date: 20120928
  Serious: No
  Sender: FDA-Public Use
  Company Number: US-PFIZER INC-2012158654

PATIENT
  Sex: Female
  Weight: 68.027 kg

DRUGS (12)
  1. LYRICA [Suspect]
     Indication: NERVE INJURY
     Dosage: 150 MG, 2X/DAY
     Route: 048
     Dates: end: 20120201
  2. LYRICA [Suspect]
     Dosage: UNK
     Route: 048
     Dates: start: 20120627
  3. BENADRYL [Concomitant]
  4. CELEXA [Concomitant]
     Indication: DEPRESSION
     Dosage: UNK
  5. BUSPAR [Concomitant]
     Indication: ANXIETY
     Dosage: UNK
  6. ZOLOFT [Concomitant]
     Indication: DEPRESSION
     Dosage: UNK
  7. LORTAB [Concomitant]
  8. AMBIEN [Concomitant]
     Dosage: UNK
  9. SEROQUEL [Concomitant]
  10. VALIUM [Concomitant]
     Indication: ANXIETY
     Dosage: UNK
  11. PHENEGRAN [Concomitant]
     Dosage: UNK
  12. ZOFRAN [Concomitant]
     Dosage: UNK

REACTIONS (7)
  - INSOMNIA [None]
  - NERVOUS SYSTEM DISORDER [None]
  - MALAISE [None]
  - FORMICATION [None]
  - PAIN [None]
  - FIBROMYALGIA [None]
  - SKIN BURNING SENSATION [None]
